FAERS Safety Report 24057863 (Version 1)
Quarter: 2024Q3

REPORT INFORMATION
  Report Type: Spontaneous
  Country: US (occurrence: US)
  Receive Date: 20240707
  Receipt Date: 20240707
  Transmission Date: 20241017
  Serious: Yes (Other)
  Sender: DR REDDYS
  Company Number: US-DRL-USA-LIT/USA/24/0009686

PATIENT
  Age: 76 Year
  Sex: Male

DRUGS (1)
  1. DAPTOMYCIN [Suspect]
     Active Substance: DAPTOMYCIN
     Indication: Device related infection

REACTIONS (3)
  - Eosinophilic pneumonia acute [Recovering/Resolving]
  - Eosinophilic pleural effusion [Recovering/Resolving]
  - Product use in unapproved indication [Unknown]
